FAERS Safety Report 7962917-0 (Version None)
Quarter: 2011Q4

REPORT INFORMATION
  Report Type: 
  Country: None (occurrence: None)
  Receive Date: 20111207
  Receipt Date: 20111128
  Transmission Date: 20120403
  Serious: Yes (Other)
  Sender: FDA-Public Use
  Company Number: US-ASTRAZENECA-2011SE72141

PATIENT
  Age: 78 Year
  Sex: Female
  Weight: 72.6 kg

DRUGS (2)
  1. ZOMIG [Suspect]
     Indication: HEADACHE
     Route: 048
  2. BLOOD PRESSURE MEDICATION [Concomitant]

REACTIONS (2)
  - HEADACHE [None]
  - CATARACT [None]
